FAERS Safety Report 8150659-0 (Version None)
Quarter: 2012Q1

REPORT INFORMATION
  Report Type: 
  Country: None (occurrence: None)
  Receive Date: 20120220
  Receipt Date: 20120214
  Transmission Date: 20120608
  Serious: Yes (Hospitalization)
  Sender: FDA-Public Use
  Company Number: PHHO2010DE09162

PATIENT
  Sex: Male
  Weight: 64 kg

DRUGS (9)
  1. AFINITOR [Suspect]
     Dosage: UNK
     Route: 048
     Dates: start: 20100616, end: 20100630
  2. AVASTIN [Suspect]
     Dosage: UNK
     Route: 048
     Dates: start: 20100320
  3. AFINITOR [Suspect]
     Indication: METASTATIC RENAL CELL CARCINOMA
     Dosage: UNK
     Route: 048
     Dates: start: 20100127, end: 20100610
  4. AVASTIN [Suspect]
     Dosage: NO TREATMENT
     Dates: start: 20100609, end: 20100609
  5. AVASTIN [Suspect]
     Dosage: UNK
     Route: 048
     Dates: start: 20100610, end: 20100707
  6. AVASTIN [Suspect]
     Indication: METASTATIC RENAL CELL CARCINOMA
     Dosage: UNK
     Route: 048
     Dates: start: 20100127
  7. AVASTIN [Suspect]
     Dosage: NO TREATMENT
     Route: 042
     Dates: start: 20100319, end: 20100319
  8. AVASTIN [Suspect]
     Dosage: UNK
     Route: 048
     Dates: start: 20100415
  9. AVASTIN [Suspect]
     Dosage: NO TREATMENT
     Dates: start: 20100414, end: 20100414

REACTIONS (4)
  - NAUSEA [None]
  - DECREASED APPETITE [None]
  - PANCREATITIS CHRONIC [None]
  - LIPASE INCREASED [None]
